FAERS Safety Report 18848308 (Version 1)
Quarter: 2021Q1

REPORT INFORMATION
  Report Type: Spontaneous
  Country: US (occurrence: US)
  Receive Date: 20210204
  Receipt Date: 20210204
  Transmission Date: 20210419
  Serious: No
  Sender: FDA-Public Use
  Company Number: US-BAYER-2021-043469

PATIENT

DRUGS (4)
  1. ALEVE [Suspect]
     Active Substance: NAPROXEN SODIUM
     Indication: JOINT SWELLING
  2. ALEVE [Suspect]
     Active Substance: NAPROXEN SODIUM
     Indication: FATIGUE
  3. LYRICA [Concomitant]
     Active Substance: PREGABALIN
     Indication: MYELITIS TRANSVERSE
     Dosage: 300 MG, BID
     Route: 048
  4. ALEVE [Suspect]
     Active Substance: NAPROXEN SODIUM
     Indication: MYALGIA

REACTIONS (3)
  - Drug ineffective [None]
  - Arthralgia [Unknown]
  - Drug ineffective for unapproved indication [Unknown]
